FAERS Safety Report 5572188-0 (Version None)
Quarter: 2007Q4

REPORT INFORMATION
  Report Type: 
  Country: None (occurrence: None)
  Receive Date: 20071221
  Receipt Date: 20071210
  Transmission Date: 20080405
  Serious: Yes (Hospitalization, Other)
  Sender: FDA-Public Use
  Company Number: CA-PFIZER INC-2007099269

PATIENT
  Sex: Male
  Weight: 56.7 kg

DRUGS (6)
  1. LYRICA [Suspect]
     Indication: POST HERPETIC NEURALGIA
     Route: 048
     Dates: start: 20071119, end: 20071120
  2. SPIRIVA [Concomitant]
  3. ALTACE [Concomitant]
  4. LIPITOR [Concomitant]
  5. NITRO-DUR [Concomitant]
  6. LASIX [Concomitant]

REACTIONS (3)
  - ASTHENIA [None]
  - CONFUSIONAL STATE [None]
  - MYOCARDIAL INFARCTION [None]
